FAERS Safety Report 7677445-X (Version None)
Quarter: 2011Q3

REPORT INFORMATION
  Report Type: 
  Country: None (occurrence: None)
  Receive Date: 20110811
  Receipt Date: 20101213
  Transmission Date: 20111222
  Serious: Yes (Other)
  Sender: FDA-Public Use
  Company Number: US-BRISTOL-MYERS SQUIBB COMPANY-15438872

PATIENT
  Sex: Male

DRUGS (3)
  1. TRUVADA [Suspect]
  2. NORVIR [Suspect]
  3. REYATAZ [Suspect]

REACTIONS (2)
  - HEPATIC ENZYME INCREASED [None]
  - PANCREATITIS [None]
